FAERS Safety Report 6334214-0 (Version None)
Quarter: 2009Q3

REPORT INFORMATION
  Report Type: 
  Country: None (occurrence: None)
  Receive Date: 20090829
  Receipt Date: 20090803
  Transmission Date: 20100115
  Serious: No
  Sender: FDA-Public Use
  Company Number: US-ABBOTT-09P-163-0589331-00

PATIENT
  Sex: Female
  Weight: 90.8 kg

DRUGS (5)
  1. SIMCOR [Suspect]
     Indication: BLOOD TRIGLYCERIDES INCREASED
     Dosage: 1000/20MG AT BEDTIME
     Route: 048
     Dates: start: 20090710
  2. SIMCOR [Suspect]
     Dosage: 500/20MG AT BEDTIME
     Route: 048
     Dates: start: 20090501, end: 20090709
  3. VICODIN [Suspect]
     Indication: PROCEDURAL PAIN
     Dosage: 5/500MG 1-2 TABLETS Q 6 HOURS AS NEEDED FOR PAIN
     Dates: start: 20090601, end: 20090730
  4. ASPIRIN [Suspect]
     Indication: DRUG USE FOR UNKNOWN INDICATION
     Route: 048
     Dates: end: 20090701
  5. VITAMINS [Concomitant]
     Indication: VITAMIN SUPPLEMENTATION

REACTIONS (2)
  - PRURITUS [None]
  - SKIN BURNING SENSATION [None]
